FAERS Safety Report 12978422 (Version 1)
Quarter: 2016Q4

REPORT INFORMATION
  Report Type: Spontaneous
  Country: US (occurrence: US)
  Receive Date: 20161127
  Receipt Date: 20161127
  Transmission Date: 20170207
  Serious: Yes (Disabling)
  Sender: FDA-Public Use
  Company Number: None

PATIENT
  Age: 51 Year
  Sex: Male
  Weight: 101.25 kg

DRUGS (1)
  1. LEVAQUIN [Suspect]
     Active Substance: LEVOFLOXACIN
     Indication: VIRAL INFECTION
     Dosage: QUANTITY:4 TABLET(S); DAILY; ORAL ?
     Route: 048
     Dates: start: 20161027, end: 20161030

REACTIONS (4)
  - Panic attack [None]
  - Burning sensation [None]
  - Paraesthesia [None]
  - Toxicity to various agents [None]

NARRATIVE: CASE EVENT DATE: 20161103
